FAERS Safety Report 19601763 (Version 1)
Quarter: 2021Q3

REPORT INFORMATION
  Report Type: Spontaneous
  Country: FR (occurrence: FR)
  Receive Date: 20210723
  Receipt Date: 20210723
  Transmission Date: 20211014
  Serious: Yes (Disabling)
  Sender: FDA-Public Use
  Company Number: FR-TEVA-2021-FR-1934533

PATIENT
  Age: 82 Year
  Sex: Female

DRUGS (5)
  1. CHLORHYDRATE DE DULOXETINE [Suspect]
     Active Substance: DULOXETINE HYDROCHLORIDE
     Indication: PRODUCT USED FOR UNKNOWN INDICATION
     Dosage: YEAR, 60MG
     Route: 048
  2. OMEPRAZOLE. [Concomitant]
     Active Substance: OMEPRAZOLE
  3. EFFEXOR [Suspect]
     Active Substance: VENLAFAXINE HYDROCHLORIDE
     Indication: PRODUCT USED FOR UNKNOWN INDICATION
     Dosage: YEAR, 1DF
     Route: 048
  4. DEPAMIDE 300 MG, COMPRIME PELLICULE GASTRO?RESISTANT [Suspect]
     Active Substance: VALPROMIDE
     Indication: PRODUCT USED FOR UNKNOWN INDICATION
     Dosage: YEAR, 1DF,GASTRO?RESISTANT FILM?COATED TABLET
     Route: 048
  5. TEMESTA [Concomitant]

REACTIONS (2)
  - Parkinsonism [Recovering/Resolving]
  - Fall [Recovering/Resolving]

NARRATIVE: CASE EVENT DATE: 202101
